FAERS Safety Report 23872877 (Version 1)
Quarter: 2024Q2

REPORT INFORMATION
  Report Type: Spontaneous
  Country: AU (occurrence: AU)
  Receive Date: 20240520
  Receipt Date: 20240520
  Transmission Date: 20240715
  Serious: Yes (Hospitalization)
  Sender: FDA-Public Use
  Company Number: AU-STERISCIENCE B.V.-2024-ST-000646

PATIENT
  Age: 83 Year
  Sex: Female

DRUGS (3)
  1. PIPERACILLIN SODIUM\TAZOBACTAM SODIUM [Suspect]
     Active Substance: PIPERACILLIN SODIUM\TAZOBACTAM SODIUM
     Indication: Evidence based treatment
     Dosage: 1 DOSAGE FORM, Q6H
     Route: 042
  2. GENTAMICIN [Suspect]
     Active Substance: GENTAMICIN
     Indication: Evidence based treatment
     Dosage: 182 MILLIGRAM SINGLE DOSE
     Route: 065
  3. FLUCLOXACILLIN [Suspect]
     Active Substance: FLUCLOXACILLIN
     Indication: Evidence based treatment
     Dosage: 2 GRAM, Q4H
     Route: 042

REACTIONS (3)
  - Candida infection [Unknown]
  - Bone marrow disorder [Unknown]
  - Drug ineffective [Unknown]
